FAERS Safety Report 9722162 (Version 2)
Quarter: 2013Q4

REPORT INFORMATION
  Report Type: Spontaneous
  Country: US (occurrence: US)
  Receive Date: 20131202
  Receipt Date: 20131222
  Transmission Date: 20140711
  Serious: No
  Sender: FDA-Public Use
  Company Number: US-009507513-1311USA006197

PATIENT
  Age: 19 Year
  Sex: Female
  Weight: 124.3 kg

DRUGS (3)
  1. IMPLANON [Suspect]
     Indication: CONTRACEPTION
     Dosage: 68 MG
     Route: 059
     Dates: start: 20101102
  2. MICROGESTIN [Concomitant]
     Indication: ORAL CONTRACEPTION
  3. ALBUTEROL SULFATE [Concomitant]

REACTIONS (2)
  - Incorrect drug administration duration [Unknown]
  - Medical device complication [Unknown]
